FAERS Safety Report 16422988 (Version 1)
Quarter: 2019Q2

REPORT INFORMATION
  Report Type: Spontaneous
  Country: BE (occurrence: BE)
  Receive Date: 20190612
  Receipt Date: 20190612
  Transmission Date: 20190711
  Serious: Yes (Life-Threatening, Hospitalization, Other)
  Sender: FDA-Public Use
  Company Number: BE-ELI_LILLY_AND_COMPANY-BE201906003517

PATIENT
  Sex: Female

DRUGS (5)
  1. DANTROLENE. [Suspect]
     Active Substance: DANTROLENE SODIUM
     Indication: PRODUCT USED FOR UNKNOWN INDICATION
     Dosage: UNK UNK, UNKNOWN
     Route: 042
  2. PARACETAMOL [Concomitant]
     Active Substance: ACETAMINOPHEN
     Indication: PAIN
  3. AUGMENTIN BD [Concomitant]
     Active Substance: AMOXICILLIN\CLAVULANIC ACID
     Indication: PRODUCT USED FOR UNKNOWN INDICATION
     Dosage: UNK
     Dates: end: 20190504
  4. ZYPADHERA [Suspect]
     Active Substance: OLANZAPINE PAMOATE
     Indication: BIPOLAR I DISORDER
     Dosage: 210 MG, EVERY 3 WEEKS
     Route: 065
     Dates: start: 2018
  5. ZYPADHERA [Suspect]
     Active Substance: OLANZAPINE PAMOATE
     Dosage: 210 MG, EVERY 4 WEEKS
     Route: 065
     Dates: start: 2018

REACTIONS (9)
  - Fall [Unknown]
  - Lung consolidation [Unknown]
  - Leukocytosis [Unknown]
  - Neuroleptic malignant syndrome [Unknown]
  - Muscular weakness [Unknown]
  - Acute kidney injury [Unknown]
  - Thrombophlebitis [Unknown]
  - C-reactive protein increased [Recovering/Resolving]
  - Blood creatine phosphokinase increased [Recovering/Resolving]
